FAERS Safety Report 16263772 (Version 2)
Quarter: 2019Q2

REPORT INFORMATION
  Report Type: Spontaneous
  Country: JP (occurrence: JP)
  Receive Date: 20190502
  Receipt Date: 20190509
  Transmission Date: 20190711
  Serious: Yes (Other)
  Sender: FDA-Public Use
  Company Number: JP-ALVOGEN-2019-ALVOGEN-099582

PATIENT
  Age: 28 Year
  Sex: Female

DRUGS (2)
  1. TENORMIN [Suspect]
     Active Substance: ATENOLOL
     Indication: VENTRICULAR FIBRILLATION
     Route: 048
  2. POTASSIUM CHLORIDE. [Concomitant]
     Active Substance: POTASSIUM CHLORIDE
     Indication: HYPOKALAEMIA
     Route: 048

REACTIONS (2)
  - Exposure during pregnancy [Unknown]
  - Foetal growth restriction [Unknown]
